FAERS Safety Report 6863917-4 (Version None)
Quarter: 2010Q3

REPORT INFORMATION
  Report Type: 
  Country: None (occurrence: None)
  Receive Date: 20100721
  Receipt Date: 20080311
  Transmission Date: 20110219
  Serious: No
  Sender: FDA-Public Use
  Company Number: US-PFIZER INC-2008023087

PATIENT
  Sex: Female
  Weight: 69.4 kg

DRUGS (12)
  1. CHANTIX [Suspect]
     Indication: SMOKING CESSATION THERAPY
     Dates: start: 20080101
  2. TALWIN [Suspect]
     Indication: PAIN
     Dates: end: 20080201
  3. TALWIN [Suspect]
     Dates: end: 20070101
  4. EFFEXOR XR [Concomitant]
  5. PREVACID [Concomitant]
  6. LODINE [Concomitant]
  7. LISINOPRIL [Concomitant]
     Dates: end: 20080201
  8. CORGARD [Concomitant]
  9. SURMONTIL [Concomitant]
  10. CLONAZEPAM [Concomitant]
  11. CRESTOR [Concomitant]
  12. SYNTHROID [Concomitant]
     Indication: HYPOTHYROIDISM

REACTIONS (3)
  - DECREASED APPETITE [None]
  - INSOMNIA [None]
  - NAUSEA [None]
